FAERS Safety Report 8248801-6 (Version None)
Quarter: 2012Q2

REPORT INFORMATION
  Report Type: 
  Country: None (occurrence: None)
  Receive Date: 20120401
  Receipt Date: 20120324
  Transmission Date: 20120825
  Serious: Yes (Other)
  Sender: FDA-Public Use
  Company Number: US-AMGEN-USASP2011018585

PATIENT
  Age: 57 Year
  Sex: Female

DRUGS (4)
  1. ENBREL [Suspect]
     Indication: RHEUMATOID ARTHRITIS
     Dosage: 25 MG, 2 TIMES/WK
     Dates: start: 20100101
  2. ENBREL [Suspect]
     Indication: PSORIATIC ARTHROPATHY
  3. ENBREL [Suspect]
     Indication: PSORIASIS
  4. METHOTREXATE [Concomitant]
     Dosage: 8 MG, QWK
     Dates: start: 20100101

REACTIONS (28)
  - DRUG HYPERSENSITIVITY [None]
  - INFECTION [None]
  - AMNESIA [None]
  - WEIGHT DECREASED [None]
  - RHEUMATOID ARTHRITIS [None]
  - INFLUENZA LIKE ILLNESS [None]
  - SKIN INDURATION [None]
  - HYPOTENSION [None]
  - LUNG INFECTION [None]
  - RASH PRURITIC [None]
  - DISTURBANCE IN ATTENTION [None]
  - FEELING ABNORMAL [None]
  - INJECTION SITE HAEMATOMA [None]
  - INJECTION SITE REACTION [None]
  - INJECTION SITE HAEMORRHAGE [None]
  - RASH [None]
  - HEADACHE [None]
  - INJECTION SITE INDURATION [None]
  - KIDNEY INFECTION [None]
  - INJECTION SITE PAIN [None]
  - MALAISE [None]
  - PSORIASIS [None]
  - DEPRESSION [None]
  - OSTEOMYELITIS [None]
  - SKIN DISORDER [None]
  - INJECTION SITE VESICLES [None]
  - CYSTITIS [None]
  - DIARRHOEA [None]
